FAERS Safety Report 9514009 (Version 1)
Quarter: 2013Q1

REPORT INFORMATION
  Report Type: Spontaneous
  Country: US (occurrence: None)
  Receive Date: 20130305
  Receipt Date: 20130305
  Transmission Date: 20140127
  Serious: Yes (Hospitalization)
  Sender: FDA-Public Use
  Company Number: 163-21880-12010001

PATIENT
  Age: 74 Year
  Sex: Female
  Weight: 59.88 kg

DRUGS (9)
  1. REVLIMID (LENALIDOMIDE) (CAPSULES) [Suspect]
     Indication: PLASMA CELL MYELOMA
     Dosage: 5MG, M-W-F X 3 WEEKS, PO
     Route: 048
     Dates: start: 20111209, end: 20111222
  2. PRILOSEC [Concomitant]
  3. LOTREL (LOTREL) [Concomitant]
  4. CLONAZEPAM (CLONAZEPAM) [Concomitant]
  5. SINGULAIR (MONTELUKAST) [Concomitant]
  6. TOPROL (METOPROLOL SUCCINATE) [Concomitant]
  7. POTASSIUM (POTASSIUM) [Concomitant]
  8. LORCET (VICODIN) [Concomitant]
  9. ASA (ACETYLSALICYLIC ACID) [Concomitant]

REACTIONS (2)
  - Dyspnoea [None]
  - Blood pressure decreased [None]
